FAERS Safety Report 24417508 (Version 1)
Quarter: 2024Q4

REPORT INFORMATION
  Report Type: Report from Study
  Country: IN (occurrence: IN)
  Receive Date: 20241009
  Receipt Date: 20241009
  Transmission Date: 20250115
  Serious: Yes (Other)
  Sender: NOVARTIS
  Company Number: IN-002147023-NVSC2024IN198288

PATIENT
  Sex: Male

DRUGS (2)
  1. MYFORTIC [Suspect]
     Active Substance: MYCOPHENOLATE SODIUM
     Indication: Renal transplant
     Dosage: 540 MG, OTHER (180MG-0-360MG)
     Route: 048
  2. TACROLIMUS [Suspect]
     Active Substance: TACROLIMUS
     Indication: Renal transplant
     Dosage: 0.5 MG, BID
     Route: 048

REACTIONS (8)
  - Transplant dysfunction [Unknown]
  - Transplant rejection [Unknown]
  - Complications of transplant surgery [Unknown]
  - New onset diabetes after transplantation [Unknown]
  - Amoebic dysentery [Unknown]
  - Hypertension [Unknown]
  - Peripheral swelling [Unknown]
  - Off label use [Unknown]
